FAERS Safety Report 5713217-0 (Version None)
Quarter: 2008Q2

REPORT INFORMATION
  Report Type: 
  Country: None (occurrence: None)
  Receive Date: 20080422
  Receipt Date: 19961121
  Transmission Date: 20081010
  Serious: Yes (Death, Hospitalization)
  Sender: FDA-Public Use
  Company Number: JP-ROCHE-72665

PATIENT
  Sex: Female
  Weight: 65 kg

DRUGS (9)
  1. TRETINOIN [Suspect]
     Route: 048
     Dates: start: 19960111, end: 19960116
  2. DAUNOMYCIN [Concomitant]
     Route: 042
     Dates: start: 19960111, end: 19960113
  3. SUNRABIN [Concomitant]
     Route: 042
     Dates: start: 19960111, end: 19960117
  4. FOY [Concomitant]
     Route: 042
     Dates: start: 19960111, end: 19960119
  5. HEPARIN [Concomitant]
     Route: 042
     Dates: start: 19960111, end: 19960119
  6. SOLU-MEDROL [Concomitant]
     Route: 042
     Dates: start: 19960112, end: 19960112
  7. SOLU-MEDROL [Concomitant]
     Route: 042
     Dates: start: 19960113, end: 19960115
  8. SOLU-MEDROL [Concomitant]
     Route: 042
     Dates: start: 19960116, end: 19960118
  9. SOLU-MEDROL [Concomitant]
     Route: 042
     Dates: start: 19960119, end: 19960119

REACTIONS (4)
  - BLOOD CREATININE INCREASED [None]
  - DEATH [None]
  - INTERSTITIAL LUNG DISEASE [None]
  - LIVER DISORDER [None]
